FAERS Safety Report 4834920-0 (Version None)
Quarter: 2005Q4

REPORT INFORMATION
  Report Type: 
  Country: None (occurrence: None)
  Receive Date: 20051115
  Receipt Date: 20051101
  Transmission Date: 20060501
  Serious: Yes (Hospitalization)
  Sender: FDA-Public Use
  Company Number: 219133

PATIENT
  Age: 63 Year
  Sex: Male

DRUGS (3)
  1. AVASTIN [Suspect]
     Indication: PANCREATIC CARCINOMA
     Dosage: 10 MG/KG, DAYS 1 + 15, INTRAVENOUS
     Route: 042
     Dates: start: 20050916
  2. ERLOTINIB (ERLOTINIB) TABLETS, 150 MG [Suspect]
     Indication: PANCREATIC CARCINOMA
     Dosage: 150 MG, QD, ORAL
     Route: 048
     Dates: start: 20050916
  3. GEMCITABINE (GEMCITABINE HYDROCHLORIDE) [Suspect]
     Indication: PANCREATIC CARCINOMA
     Dosage: 100 MG/M2, 1 WEEK, INTRAVENOUS
     Route: 042
     Dates: start: 20050916

REACTIONS (1)
  - CHEST PAIN [None]
